FAERS Safety Report 4482473-1 (Version None)
Quarter: 2004Q4

REPORT INFORMATION
  Report Type: 
  Country: None (occurrence: None)
  Receive Date: 20041022
  Receipt Date: 20041014
  Transmission Date: 20050328
  Serious: Yes (Life-Threatening, Hospitalization)
  Sender: FDA-Public Use
  Company Number: FR-GLAXOSMITHKLINE-B0348278A

PATIENT
  Age: 32 Year
  Sex: Female

DRUGS (4)
  1. SALBUMOL [Suspect]
     Dosage: 4MLH SEE DOSAGE TEXT
     Route: 042
     Dates: start: 20040806, end: 20040808
  2. EUPHYTOSE [Concomitant]
     Dosage: 6UNIT PER DAY
     Route: 048
     Dates: start: 20040811
  3. SPASFON [Concomitant]
     Dosage: 6UNIT PER DAY
     Route: 048
     Dates: start: 20040811
  4. LOXEN [Concomitant]
     Indication: HYPERTENSION
     Dosage: 20MG PER DAY
     Route: 048
     Dates: start: 20040811

REACTIONS (6)
  - COUGH [None]
  - DEPRESSED LEVEL OF CONSCIOUSNESS [None]
  - DYSPNOEA [None]
  - HAEMOPTYSIS [None]
  - OXYGEN SATURATION DECREASED [None]
  - PULMONARY OEDEMA [None]
